FAERS Safety Report 9539326 (Version 1)
Quarter: 2013Q3

REPORT INFORMATION
  Report Type: Spontaneous
  Country: FR (occurrence: None)
  Receive Date: 20130917
  Receipt Date: 20130917
  Transmission Date: 20140515
  Serious: Yes (Hospitalization)
  Sender: FDA-Public Use
  Company Number: 7235166

PATIENT
  Age: 0 Day
  Sex: Male

DRUGS (6)
  1. LEVOTHYROX [Suspect]
     Indication: HYPOTHYROIDISM
     Dosage: 87.5 MCG (87.5 MCG, 1 IN 1 D) ?PRODUCT TAKEN BY MOTHER
     Dates: end: 20120306
  2. KEPPRA [Suspect]
     Dosage: 1 GM (2 DF)?PRODUCT TAKEN BY MOTHER
     Dates: end: 20120306
  3. LAMICTAL [Suspect]
     Indication: EPILEPSY
     Dosage: PRODUCT TAKEN BY MOTHER
     Dates: end: 20120306
  4. URBANYL [Suspect]
     Indication: EPILEPSY
     Dosage: PRODUCT TAKEN BY MOTHER
     Dates: end: 20120306
  5. TRANDATE [Suspect]
     Indication: HYPERTENSION
     Dosage: PRODUCT TAKEN BY MOTHER
     Dates: end: 20130306
  6. INSULIN [Suspect]
     Indication: GESTATIONAL DIABETES
     Dosage: PRODUCT TAKEN BY MOTHER
     Dates: end: 20120306

REACTIONS (3)
  - Hypoglycaemia neonatal [None]
  - Tremor neonatal [None]
  - Foetal exposure during pregnancy [None]
